FAERS Safety Report 7563666-3 (Version None)
Quarter: 2011Q2

REPORT INFORMATION
  Report Type: 
  Country: None (occurrence: None)
  Receive Date: 20110622
  Receipt Date: 20110610
  Transmission Date: 20111010
  Serious: Yes (Death)
  Sender: FDA-Public Use
  Company Number: CA-ROCHE-782368

PATIENT
  Sex: Female

DRUGS (6)
  1. MELOXICAM [Concomitant]
  2. CAPECITABINE [Suspect]
     Indication: BREAST CANCER
     Route: 048
     Dates: start: 20110510, end: 20110501
  3. BACLOFENE [Concomitant]
  4. HYDROMORPHONE HCL [Concomitant]
  5. HALOPERIDOL [Concomitant]
     Dosage: DRUG REPORTED AS TEVA-HALOPERIDOL
  6. AMLODIPINE [Concomitant]
     Dosage: DRUG REPORTED AS: MYLAN-AMLODIPINE

REACTIONS (1)
  - DEATH [None]
